FAERS Safety Report 12094429 (Version 2)
Quarter: 2016Q1

REPORT INFORMATION
  Report Type: Report from Study
  Country: US (occurrence: US)
  Receive Date: 20160219
  Receipt Date: 20160224
  Transmission Date: 20160526
  Serious: Yes (Hospitalization)
  Sender: FDA-Public Use
  Company Number: US-JNJFOC-20151207720

PATIENT
  Sex: Male

DRUGS (2)
  1. IMBRUVICA [Suspect]
     Active Substance: IBRUTINIB
     Indication: NON-HODGKIN^S LYMPHOMA
     Route: 048
     Dates: start: 20151020, end: 20151222
  2. IMBRUVICA [Suspect]
     Active Substance: IBRUTINIB
     Indication: CHRONIC LYMPHOCYTIC LEUKAEMIA
     Route: 048
     Dates: start: 20151020, end: 20151222

REACTIONS (11)
  - Dry mouth [Unknown]
  - Pericardial effusion [Unknown]
  - Abasia [Unknown]
  - Fatigue [Unknown]
  - Dizziness [Not Recovered/Not Resolved]
  - Atrial fibrillation [Recovering/Resolving]
  - Blood blister [Recovering/Resolving]
  - Nightmare [Not Recovered/Not Resolved]
  - Dyspnoea [Unknown]
  - Stomatitis [Not Recovered/Not Resolved]
  - Disease progression [Unknown]

NARRATIVE: CASE EVENT DATE: 2015
